FAERS Safety Report 9703028 (Version 1)
Quarter: 2013Q4

REPORT INFORMATION
  Report Type: Spontaneous
  Country: US (occurrence: US)
  Receive Date: 20131122
  Receipt Date: 20131122
  Transmission Date: 20140711
  Serious: Yes (Death, Hospitalization)
  Sender: FDA-Public Use
  Company Number: US-ROCHE-1303981

PATIENT
  Sex: Male

DRUGS (1)
  1. AVASTIN [Suspect]
     Indication: LUNG NEOPLASM MALIGNANT
     Route: 065
     Dates: end: 201308

REACTIONS (4)
  - Disease progression [Fatal]
  - Pneumonia aspiration [Unknown]
  - Disseminated intravascular coagulation [Unknown]
  - Drug ineffective [Unknown]
